FAERS Safety Report 4837380-9 (Version None)
Quarter: 2005Q4

REPORT INFORMATION
  Report Type: 
  Country: None (occurrence: None)
  Receive Date: 20051122
  Receipt Date: 20051107
  Transmission Date: 20060501
  Serious: Yes (Life-Threatening, Hospitalization)
  Sender: FDA-Public Use
  Company Number: 219304

PATIENT
  Age: 58 Year
  Sex: Female
  Weight: 50 kg

DRUGS (10)
  1. MABTHERA (RITUXIMAB) CONC FOR SOLUTION FOR INFUSION [Suspect]
     Dosage: 500 MG, SINGLE, INTRAVENOUS
     Route: 042
     Dates: start: 20050928, end: 20050928
  2. METHOTREXATE [Concomitant]
  3. DEXAMETHASONE [Concomitant]
  4. SODIUM NOS (SODIUM NOS) [Concomitant]
  5. G-CSF (FILGRASTIM) [Concomitant]
  6. GM-CSF (SARGRAMOSTIM) [Concomitant]
  7. AUGMENTIN '250' [Concomitant]
  8. VANCOMYCIN HCL [Concomitant]
  9. LEVOFLOXACIN [Concomitant]
  10. TAZOCIN (PIPERACILLIN SODIUM, TAZOBACTAM SODIUM) [Concomitant]

REACTIONS (3)
  - AGRANULOCYTOSIS [None]
  - GASTROINTESTINAL ULCER [None]
  - HAEMOGLOBIN DECREASED [None]
